FAERS Safety Report 5490952-3 (Version None)
Quarter: 2007Q4

REPORT INFORMATION
  Report Type: 
  Country: None (occurrence: None)
  Receive Date: 20071019
  Receipt Date: 20071009
  Transmission Date: 20080405
  Serious: Yes (Other)
  Sender: FDA-Public Use
  Company Number: US-PFIZER INC-2007085456

PATIENT
  Sex: Female

DRUGS (4)
  1. ZOLOFT [Suspect]
     Indication: DEMENTIA ALZHEIMER'S TYPE
  2. SIMVASTATIN [Concomitant]
  3. SERTRALINE [Concomitant]
  4. CALCIUM [Concomitant]

REACTIONS (6)
  - BLADDER DISORDER [None]
  - FATIGUE [None]
  - IMPAIRED WORK ABILITY [None]
  - METASTATIC NEOPLASM [None]
  - SOMNOLENCE [None]
  - SURGERY [None]
